FAERS Safety Report 9776385 (Version 1)
Quarter: 2013Q4

REPORT INFORMATION
  Report Type: Spontaneous
  Country: BG (occurrence: BG)
  Receive Date: 20131220
  Receipt Date: 20131220
  Transmission Date: 20140711
  Serious: Yes (Life-Threatening, Hospitalization)
  Sender: FDA-Public Use
  Company Number: BG-MYLANLABS-2013S1027895

PATIENT
  Age: 3 Month
  Sex: Female
  Weight: 5.3 kg

DRUGS (3)
  1. BRIMONIDINE [Suspect]
     Indication: DEVELOPMENTAL GLAUCOMA
     Route: 061
  2. BRINZOLAMIDE [Suspect]
     Indication: DEVELOPMENTAL GLAUCOMA
     Route: 061
  3. TIMOLOL [Suspect]
     Indication: DEVELOPMENTAL GLAUCOMA
     Route: 061

REACTIONS (8)
  - Stupor [Recovered/Resolved]
  - Hypotonia [Recovered/Resolved]
  - Hypothermia [Recovered/Resolved]
  - Apnoea [Recovered/Resolved]
  - Sinus bradycardia [Recovered/Resolved]
  - Hypotension [Recovered/Resolved]
  - Bronchial obstruction [Recovered/Resolved]
  - Cardiogenic shock [Recovered/Resolved]
